FAERS Safety Report 9292598 (Version 3)
Quarter: 2013Q3

REPORT INFORMATION
  Report Type: Report from Study
  Country: JP (occurrence: JP)
  Receive Date: 20130516
  Receipt Date: 20130926
  Transmission Date: 20140515
  Serious: Yes (Death, Life-Threatening, Hospitalization)
  Sender: FDA-Public Use
  Company Number: JP-CELGENEUS-087-50794-13051873

PATIENT
  Age: 64 Year
  Sex: Male
  Weight: 55 kg

DRUGS (25)
  1. VIDAZA [Suspect]
     Route: 058
     Dates: start: 20120323, end: 20120323
  2. VIDAZA [Suspect]
     Route: 058
     Dates: start: 20120325, end: 20120327
  3. VIDAZA [Suspect]
     Route: 058
     Dates: start: 20120329, end: 20120329
  4. VIDAZA [Suspect]
     Route: 058
     Dates: start: 20120419, end: 20120420
  5. VIDAZA [Suspect]
     Route: 058
     Dates: start: 20120422, end: 20120424
  6. VIDAZA [Suspect]
     Route: 058
     Dates: start: 20120426, end: 20120427
  7. VIDAZA [Suspect]
     Route: 058
     Dates: start: 20120517, end: 20120522
  8. VIDAZA [Suspect]
     Route: 058
     Dates: start: 20120525, end: 20120525
  9. BYETTA [Concomitant]
     Indication: PRODUCT USED FOR UNKNOWN INDICATION
     Route: 065
  10. DIOVAN [Concomitant]
     Indication: PRODUCT USED FOR UNKNOWN INDICATION
     Route: 065
  11. EUGLUCON [Concomitant]
     Indication: PRODUCT USED FOR UNKNOWN INDICATION
     Route: 065
  12. LASIX [Concomitant]
     Indication: PRODUCT USED FOR UNKNOWN INDICATION
     Route: 065
  13. FLUITRAN [Concomitant]
     Indication: PRODUCT USED FOR UNKNOWN INDICATION
     Route: 065
  14. ALFAROL [Concomitant]
     Indication: PRODUCT USED FOR UNKNOWN INDICATION
     Route: 065
  15. NAUZELIN [Concomitant]
     Indication: PRODUCT USED FOR UNKNOWN INDICATION
     Route: 065
     Dates: start: 20111201
  16. MUCOSTA [Concomitant]
     Indication: PRODUCT USED FOR UNKNOWN INDICATION
     Route: 065
     Dates: start: 20120124, end: 20120130
  17. KLARICID [Concomitant]
     Indication: PRODUCT USED FOR UNKNOWN INDICATION
     Route: 065
     Dates: start: 20120124, end: 20120130
  18. MUCODYNE [Concomitant]
     Indication: PRODUCT USED FOR UNKNOWN INDICATION
     Route: 065
     Dates: start: 20120124, end: 20120130
  19. LOXONIN [Concomitant]
     Indication: PRODUCT USED FOR UNKNOWN INDICATION
     Route: 065
     Dates: start: 20120124, end: 20120130
  20. ANTIBIOTICS [Concomitant]
     Indication: NASOPHARYNGITIS
     Route: 065
  21. VIDAZA [Suspect]
     Indication: MYELODYSPLASTIC SYNDROME
     Dosage: 75 MILLIGRAM/SQ. METER
     Route: 058
     Dates: start: 20111201, end: 20111205
  22. VIDAZA [Suspect]
     Route: 058
     Dates: start: 20120106, end: 20120108
  23. VIDAZA [Suspect]
     Route: 058
     Dates: start: 20120110, end: 20120110
  24. VIDAZA [Suspect]
     Route: 058
     Dates: start: 20120112, end: 20120112
  25. VIDAZA [Suspect]
     Route: 058
     Dates: start: 20120223, end: 20120227

REACTIONS (8)
  - Death [Fatal]
  - Superior vena cava syndrome [Unknown]
  - Neck pain [Unknown]
  - Lung neoplasm malignant [Unknown]
  - C-reactive protein increased [Recovered/Resolved]
  - Nausea [Recovered/Resolved]
  - Nausea [Recovered/Resolved]
  - Pneumonia [Recovered/Resolved]
